FAERS Safety Report 25112214 (Version 3)
Quarter: 2025Q3

REPORT INFORMATION
  Report Type: Spontaneous
  Country: JP (occurrence: JP)
  Receive Date: 20250324
  Receipt Date: 20250802
  Transmission Date: 20251020
  Serious: Yes (Other)
  Sender: ALEXION PHARMACEUTICALS
  Company Number: JP-ASTRAZENECA-250026415_032420_P_1

PATIENT
  Age: 16 Year
  Sex: Male

DRUGS (8)
  1. TEZSPIRE [Suspect]
     Active Substance: TEZEPELUMAB-EKKO
     Indication: Asthma exercise induced
  2. TEZSPIRE [Suspect]
     Active Substance: TEZEPELUMAB-EKKO
  3. ADRENAL [Concomitant]
     Active Substance: EPINEPHRINE
     Indication: Asthma exercise induced
  4. Broncho [Concomitant]
     Indication: Asthma exercise induced
     Route: 065
  5. Broncho [Concomitant]
     Route: 065
  6. Broncho [Concomitant]
     Route: 065
  7. ANTIHISTAMINES NOS [Concomitant]
     Active Substance: ANTIHISTAMINES NOS
     Indication: Asthma exercise induced
     Route: 065
  8. GLYCOPYRROLATE\INDACATEROL\MOMETASONE FUROATE [Concomitant]
     Active Substance: GLYCOPYRROLATE\INDACATEROL\MOMETASONE FUROATE
     Indication: Asthma exercise induced
     Route: 065

REACTIONS (7)
  - Urticaria [Recovered/Resolved]
  - Pneumonia [Recovered/Resolved]
  - Cough [Recovered/Resolved]
  - Sputum discoloured [Recovered/Resolved]
  - Wheezing [Recovered/Resolved]
  - Sinusitis [Recovered/Resolved]
  - Lung opacity [Recovered/Resolved]
